FAERS Safety Report 7938543-6 (Version None)
Quarter: 2011Q4

REPORT INFORMATION
  Report Type: 
  Country: None (occurrence: None)
  Receive Date: 20111123
  Receipt Date: 20111115
  Transmission Date: 20120403
  Serious: Yes (Hospitalization)
  Sender: FDA-Public Use
  Company Number: US-ALLERGAN-1115071US

PATIENT
  Age: 45 Year
  Sex: Male

DRUGS (1)
  1. BOTOX COSMETIC [Suspect]
     Indication: SKIN WRINKLING
     Dosage: 54 UNITS, SINGLE
     Route: 030
     Dates: start: 20111103, end: 20111103

REACTIONS (7)
  - DIZZINESS [None]
  - HEADACHE [None]
  - EYELID PTOSIS [None]
  - DISTURBANCE IN ATTENTION [None]
  - FACIAL PARESIS [None]
  - EYE PAIN [None]
  - MALAISE [None]
